FAERS Safety Report 9572538 (Version 6)
Quarter: 2014Q2

REPORT INFORMATION
  Report Type: Report from Study
  Country: GB (occurrence: GB)
  Receive Date: 20131001
  Receipt Date: 20140619
  Transmission Date: 20141212
  Serious: Yes (Other)
  Sender: FDA-Public Use
  Company Number: GB-ABBVIE-13P-167-1150477-00

PATIENT
  Age: 33 Year
  Sex: Female
  Weight: 133 kg

DRUGS (10)
  1. HUMIRA [Suspect]
     Indication: PSORIASIS
     Route: 058
     Dates: start: 20081128
  2. HUMIRA [Suspect]
     Route: 058
     Dates: start: 20100618, end: 20100702
  3. TRAZODONE [Concomitant]
     Indication: DEPRESSION
     Dosage: AT NIGHT
     Dates: start: 20081201
  4. ENBREL [Concomitant]
     Indication: PSORIASIS
     Dates: start: 20100716, end: 20101116
  5. USTEKINUMAB [Concomitant]
     Indication: PSORIASIS
     Dosage: LOADING DOSE EVERY 12 WEEKS
     Dates: start: 20110518
  6. METFORMIN [Concomitant]
     Indication: DIABETES MELLITUS
     Dates: start: 20110907
  7. LIRAGLUTIDE [Concomitant]
     Indication: DIABETES MELLITUS
     Dates: start: 20121110
  8. LEVOTHYROXINE SODIUM [Concomitant]
     Indication: HYPOTHYROIDISM
     Dates: start: 20110626
  9. DULOXOTINE [Concomitant]
     Indication: PROPHYLAXIS
     Dates: start: 20120814
  10. DULOXOTINE [Concomitant]
     Indication: GASTRIC DISORDER

REACTIONS (2)
  - Pleomorphic adenoma [Recovered/Resolved]
  - Salivary gland adenoma [Recovered/Resolved]
